FAERS Safety Report 9869227 (Version 4)
Quarter: 2015Q1

REPORT INFORMATION
  Report Type: Report from Study
  Country: ES (occurrence: ES)
  Receive Date: 20140205
  Receipt Date: 20150129
  Transmission Date: 20150721
  Serious: Yes (Hospitalization, Disabling, Other)
  Sender: FDA-Public Use
  Company Number: PHHO2013ES011452

PATIENT

DRUGS (8)
  1. ATORVASTATIN [Concomitant]
     Active Substance: ATORVASTATIN
     Indication: DYSLIPIDAEMIA
     Dosage: 80 MG, QD (80MG/24H)
     Route: 065
  2. GEMFIBROZIL. [Concomitant]
     Active Substance: GEMFIBROZIL
     Indication: DYSLIPIDAEMIA
     Dosage: 900 MG, QD
     Route: 065
  3. AAS [Concomitant]
     Active Substance: ASPIRIN
     Indication: ISCHAEMIC CARDIOMYOPATHY
     Dosage: 100 MG, QD (100MG/24H)
     Route: 065
  4. SINTROM [Concomitant]
     Active Substance: ACENOCOUMAROL
  5. ALLOPURINOL. [Concomitant]
     Active Substance: ALLOPURINOL
  6. AMN107 [Suspect]
     Active Substance: NILOTINIB
     Indication: CHRONIC MYELOID LEUKAEMIA
     Dosage: 300 MG, BID
     Route: 048
     Dates: start: 20080910, end: 20130901
  7. ENALAPRIL [Concomitant]
     Active Substance: ENALAPRIL
  8. ATENOLOL. [Concomitant]
     Active Substance: ATENOLOL
     Indication: ISCHAEMIC CARDIOMYOPATHY
     Dosage: 50 MG, QD (50MG/24H)
     Route: 065

REACTIONS (4)
  - Blindness [Not Recovered/Not Resolved]
  - Infarction [Recovering/Resolving]
  - Carotid artery occlusion [Recovering/Resolving]
  - Peripheral arterial occlusive disease [Recovered/Resolved with Sequelae]

NARRATIVE: CASE EVENT DATE: 201309
